FAERS Safety Report 13073511 (Version 2)
Quarter: 2017Q1

REPORT INFORMATION
  Report Type: Spontaneous
  Country: JP (occurrence: JP)
  Receive Date: 20161229
  Receipt Date: 20170316
  Transmission Date: 20170428
  Serious: Yes (Death, Life-Threatening)
  Sender: FDA-Public Use
  Company Number: JP-SHIONOGI, INC-2016001008

PATIENT
  Age: 78 Year
  Sex: Male
  Weight: 43.5 kg

DRUGS (9)
  1. FINIBAX [Suspect]
     Active Substance: DORIPENEM MONOHYDRATE
     Indication: POST PROCEDURAL BILE LEAK
     Dosage: 0.25 G, QD
     Route: 041
     Dates: start: 20161008, end: 20161018
  2. OMEPRAL                            /00661201/ [Suspect]
     Active Substance: OMEPRAZOLE
     Dosage: 20 MG, BID
     Route: 042
     Dates: start: 20160925, end: 20161012
  3. ZOSYN [Suspect]
     Active Substance: PIPERACILLIN SODIUM\TAZOBACTAM SODIUM
     Indication: POST PROCEDURAL BILE LEAK
     Dosage: 4.5 G, TID
     Route: 041
     Dates: start: 20160927, end: 20161008
  4. ZOSYN [Suspect]
     Active Substance: PIPERACILLIN SODIUM\TAZOBACTAM SODIUM
     Indication: ABDOMINAL ABSCESS
  5. CUBICIN [Suspect]
     Active Substance: DAPTOMYCIN
     Indication: POST PROCEDURAL BILE LEAK
     Dosage: 350 MG, QD
     Route: 041
     Dates: start: 20161008, end: 20161018
  6. CUBICIN [Suspect]
     Active Substance: DAPTOMYCIN
     Indication: ABDOMINAL ABSCESS
  7. FINIBAX [Suspect]
     Active Substance: DORIPENEM MONOHYDRATE
     Indication: ABDOMINAL ABSCESS
  8. TAKECAB [Suspect]
     Active Substance: VONOPRAZAN FUMURATE
     Dosage: 20 MG, QD
     Route: 054
     Dates: end: 20161010
  9. ACELIO [Suspect]
     Active Substance: ACETAMINOPHEN
     Dosage: 500 MG, QD
     Route: 042
     Dates: start: 20161008, end: 20161016

REACTIONS (3)
  - Renal failure [Fatal]
  - Hepatic failure [Fatal]
  - Toxic epidermal necrolysis [Recovered/Resolved]

NARRATIVE: CASE EVENT DATE: 20161015
